FAERS Safety Report 14416643 (Version 3)
Quarter: 2018Q4

REPORT INFORMATION
  Report Type: Spontaneous
  Country: FR (occurrence: FR)
  Receive Date: 20180122
  Receipt Date: 20181130
  Transmission Date: 20190204
  Serious: Yes (Other)
  Sender: FDA-Public Use
  Company Number: FR-ACCORD-062865

PATIENT
  Age: 78 Year
  Sex: Male

DRUGS (9)
  1. ALLOPURINOL. [Suspect]
     Active Substance: ALLOPURINOL
     Indication: PRODUCT USED FOR UNKNOWN INDICATION
  2. BICALUTAMIDE. [Interacting]
     Active Substance: BICALUTAMIDE
     Indication: PROSTATE CANCER
  3. TRAMADOL. [Concomitant]
     Active Substance: TRAMADOL
  4. TRAZODONE [Interacting]
     Active Substance: TRAZODONE HYDROCHLORIDE
     Indication: ABNORMAL BEHAVIOUR
  5. GOSERELIN/GOSERELIN ACETATE [Interacting]
     Active Substance: GOSERELIN
     Indication: PROSTATE CANCER
  6. ATORVASTATIN [Concomitant]
     Active Substance: ATORVASTATIN
  7. CLOZAPINE. [Interacting]
     Active Substance: CLOZAPINE
     Indication: ABNORMAL BEHAVIOUR
     Dosage: GRADUAL INCREASE OF DOSE UP TO 25 MG/DAY
  8. BISOPROLOL [Concomitant]
     Active Substance: BISOPROLOL
  9. ACETYLSALICYLIC ACID [Concomitant]
     Active Substance: ASPIRIN

REACTIONS (2)
  - Drug interaction [Unknown]
  - Electrocardiogram QT prolonged [Recovered/Resolved]
